FAERS Safety Report 9548901 (Version 1)
Quarter: 2013Q2

REPORT INFORMATION
  Report Type: Spontaneous
  Country: US (occurrence: None)
  Receive Date: 20130627
  Receipt Date: 20130627
  Transmission Date: 20140414
  Serious: Yes (Hospitalization)
  Sender: FDA-Public Use
  Company Number: CABO-13002764

PATIENT
  Age: 7 Year
  Sex: Female
  Weight: 20.4 kg

DRUGS (10)
  1. COMETRIQ (CABOZANTINIB) CAPSULE [Suspect]
     Indication: HEPATIC CANCER
     Route: 048
     Dates: start: 20130501
  2. RAPAMUNE (SIROLIMUS) [Concomitant]
  3. MEGESTROL (MEGESTROL) [Concomitant]
  4. AMLODIPINE (AMLODIPINE) [Concomitant]
  5. IMODIUM (LOPERAMIDE HYDROCHLORIDE) [Concomitant]
  6. BACTRIM [Concomitant]
  7. POTASSIUM (POTASSIUM) [Concomitant]
  8. PHOSPHORUS (PHOSPHORUS) [Concomitant]
  9. MAGNESIUM SULFATE (MAGNESIUM SULFATE) [Concomitant]
  10. ZOFRAN (ONDANSETRON) [Concomitant]

REACTIONS (2)
  - Nausea [None]
  - Decreased appetite [None]
